FAERS Safety Report 6592427 (Version 4)
Quarter: 2013Q4

REPORT INFORMATION
  Report Type: Spontaneous
  Country: JP (occurrence: JP)
  Receive Date: 20080325
  Receipt Date: 20131121
  Transmission Date: 20140711
  Serious: Yes (Hospitalization, Disabling, Other)
  Sender: FDA-Public Use
  Company Number: JP-JNJFOC-20080303971

PATIENT
  Sex: Female

DRUGS (14)
  1. RISPERDAL [Suspect]
     Indication: SCHIZOPHRENIA
     Route: 048
     Dates: start: 20040130, end: 20050516
  2. HALOMONTH [Suspect]
     Indication: SCHIZOPHRENIA
     Route: 030
     Dates: start: 20040326, end: 20050506
  3. SULTOPRIDE [Concomitant]
     Indication: INSOMNIA
     Route: 048
     Dates: start: 20020220, end: 20050516
  4. SULTOPRIDE [Concomitant]
     Indication: INSOMNIA
     Route: 048
     Dates: start: 20030516, end: 20050516
  5. SULTOPRIDE [Concomitant]
     Indication: SCHIZOPHRENIA
     Route: 048
     Dates: start: 20030516, end: 20050516
  6. SULTOPRIDE [Concomitant]
     Indication: SCHIZOPHRENIA
     Route: 048
     Dates: start: 20020220, end: 20050516
  7. HALOPERIDOL [Concomitant]
     Indication: SCHIZOPHRENIA
     Route: 048
     Dates: start: 20021127, end: 20050516
  8. TRIHEXYPHENIDYL [Concomitant]
     Indication: PARKINSONISM
     Route: 048
     Dates: start: 19981127, end: 20050516
  9. PEROSPIRONE [Concomitant]
     Indication: SCHIZOPHRENIA
     Route: 048
     Dates: start: 19950516
  10. CONTOMIN [Concomitant]
     Indication: SCHIZOPHRENIA
     Route: 048
     Dates: start: 20020621, end: 20050516
  11. CONTOMIN [Concomitant]
     Indication: SCHIZOPHRENIA
     Route: 048
     Dates: end: 20050516
  12. ZOTEPINE [Concomitant]
     Indication: SCHIZOPHRENIA
     Route: 048
     Dates: start: 19870219, end: 20050516
  13. LEVOMEPROMAZINE [Concomitant]
     Indication: SCHIZOPHRENIA
     Route: 048
     Dates: start: 19980710, end: 20050516
  14. VEGETAMIN-A [Concomitant]
     Indication: INSOMNIA
     Route: 048
     Dates: end: 20050516

REACTIONS (6)
  - Electrocardiogram QT prolonged [Recovered/Resolved]
  - Cardio-respiratory arrest [Unknown]
  - Hypoxic-ischaemic encephalopathy [Unknown]
  - Ventricular tachycardia [Unknown]
  - Ventricular fibrillation [Unknown]
  - Cerebral disorder [Unknown]
